FAERS Safety Report 8337596-3 (Version None)
Quarter: 2012Q2

REPORT INFORMATION
  Report Type: 
  Country: None (occurrence: None)
  Receive Date: 20120504
  Receipt Date: 20110617
  Transmission Date: 20120825
  Serious: Yes (Other)
  Sender: FDA-Public Use
  Company Number: US-JNJCP-30000059256

PATIENT
  Sex: Male

DRUGS (2)
  1. NONE [Concomitant]
  2. NTG ULTIMATE SPORT SPRAY SUNBLCK SPF100 USA 086800860112 6800860112USA [Suspect]
     Dosage: THROUGHT OUT THE DAY
     Route: 061
     Dates: start: 20110611, end: 20110611

REACTIONS (3)
  - SKIN CANCER [None]
  - SUNBURN [None]
  - DRUG INEFFECTIVE [None]
